FAERS Safety Report 17835396 (Version 1)
Quarter: 2020Q2

REPORT INFORMATION
  Report Type: Report from Study
  Country: CA (occurrence: CA)
  Receive Date: 20200528
  Receipt Date: 20200528
  Transmission Date: 20200714
  Serious: Yes (Hospitalization, Other)
  Sender: FDA-Public Use
  Company Number: CA-JNJFOC-20200109063

PATIENT
  Age: 52 Year
  Sex: Male
  Weight: 113.6 kg

DRUGS (3)
  1. REMICADE [Suspect]
     Active Substance: INFLIXIMAB
     Dosage: RECEIVED 14TH INFLIXIMAB INFUSION OF 1700 MG ON 14-MAY-2020
     Route: 042
     Dates: start: 20190419
  2. REMICADE [Suspect]
     Active Substance: INFLIXIMAB
     Indication: CROHN^S DISEASE
     Dosage: 10TH INFUSION RECEIVED ON 06-JAN-2020  UNIT DOSE: 1300 MG, 12TH INFUSION ON 25-MAR-2020
     Route: 042
     Dates: start: 20181229
  3. REMICADE [Suspect]
     Active Substance: INFLIXIMAB
     Dosage: 13TH INFUSION (1300 MG) ON 23-APR-2020
     Route: 042
     Dates: start: 20190409

REACTIONS (11)
  - Retinal vascular occlusion [Unknown]
  - Crohn^s disease [Not Recovered/Not Resolved]
  - Blindness unilateral [Unknown]
  - Infusion related reaction [Unknown]
  - Eye swelling [Unknown]
  - Deep vein thrombosis [Unknown]
  - Drug specific antibody present [Unknown]
  - Therapeutic product effect decreased [Unknown]
  - Optic neuropathy [Not Recovered/Not Resolved]
  - Retinal vascular thrombosis [Unknown]
  - Ocular discomfort [Unknown]

NARRATIVE: CASE EVENT DATE: 20200325
